FAERS Safety Report 7766001-0 (Version None)
Quarter: 2011Q3

REPORT INFORMATION
  Report Type: 
  Country: None (occurrence: None)
  Receive Date: 20110921
  Receipt Date: 20110908
  Transmission Date: 20111222
  Serious: Yes (Other)
  Sender: FDA-Public Use
  Company Number: BE-MYLANLABS-2011S1019231

PATIENT
  Age: 76 Year
  Sex: Male

DRUGS (3)
  1. DILTIAZEM [Suspect]
     Dosage: 300MG THAT MORNING
     Route: 048
  2. BISOPROLOL FUMARATE [Suspect]
     Dosage: 2.5MG THAT MORNING
     Route: 048
  3. PROPRANOLOL [Suspect]
     Dosage: 80MG THE PREVIOUS NIGHT
     Route: 048

REACTIONS (3)
  - HYPOTENSION [None]
  - SINUS BRADYCARDIA [None]
  - TOXICITY TO VARIOUS AGENTS [None]
